FAERS Safety Report 10298483 (Version 2)
Quarter: 2014Q3

REPORT INFORMATION
  Report Type: Spontaneous
  Country: US (occurrence: US)
  Receive Date: 20140711
  Receipt Date: 20140731
  Transmission Date: 20150326
  Serious: No
  Sender: FDA-Public Use
  Company Number: US-BAXTER-2014BAX037943

PATIENT
  Age: 73 Year
  Sex: Female

DRUGS (2)
  1. DIANEAL LOW CALCIUM PERITONEAL DIALYSIS SOLUTION WITH DEXTROSE [Suspect]
     Active Substance: CALCIUM CHLORIDE\DEXTROSE\MAGNESIUM CHLORIDE\SODIUM CHLORIDE\SODIUM LACTATE
     Indication: RENAL FAILURE CHRONIC
     Route: 033
     Dates: start: 2007
  2. DIANEAL LOW CALCIUM PERITONEAL DIALYSIS SOLUTION WITH DEXTROSE [Suspect]
     Active Substance: CALCIUM CHLORIDE\DEXTROSE\MAGNESIUM CHLORIDE\SODIUM CHLORIDE\SODIUM LACTATE
     Indication: RENAL FAILURE CHRONIC
     Route: 033
     Dates: start: 2007

REACTIONS (6)
  - Head injury [Recovering/Resolving]
  - Skeletal injury [Recovering/Resolving]
  - Fall [Recovered/Resolved with Sequelae]
  - Periorbital contusion [Recovering/Resolving]
  - Joint injury [Recovering/Resolving]
  - Limb injury [Recovering/Resolving]

NARRATIVE: CASE EVENT DATE: 20140612
